FAERS Safety Report 9004959 (Version 2)
Quarter: 2013Q1

REPORT INFORMATION
  Report Type: Spontaneous
  Country: KR (occurrence: KR)
  Receive Date: 20130109
  Receipt Date: 20130217
  Transmission Date: 20140127
  Serious: Yes (Death, Other)
  Sender: FDA-Public Use
  Company Number: KR-009507513-1301KOR002141

PATIENT
  Age: 67 Year
  Sex: Male

DRUGS (2)
  1. NOXAFIL [Suspect]
     Indication: BRONCHOPULMONARY ASPERGILLOSIS
     Dosage: 800 MG, QD
     Route: 048
  2. NOXAFIL [Suspect]
     Indication: ANTIFUNGAL TREATMENT

REACTIONS (2)
  - Septic shock [Fatal]
  - Therapy responder [Unknown]
